FAERS Safety Report 16476722 (Version 5)
Quarter: 2020Q1

REPORT INFORMATION
  Report Type: Spontaneous
  Country: JP (occurrence: JP)
  Receive Date: 20190626
  Receipt Date: 20200212
  Transmission Date: 20200409
  Serious: Yes (Hospitalization)
  Sender: FDA-Public Use
  Company Number: JP-ROCHE-2343852

PATIENT
  Age: 63 Year
  Sex: Male
  Weight: 52 kg

DRUGS (10)
  1. CALCIUM LEVOFOLINATE [Concomitant]
     Active Substance: LEVOLEUCOVORIN CALCIUM
     Indication: RECTAL CANCER
     Dosage: UNCERTAIN DOSAGE AND DOSE INTERVAL UNCERTAINTY
     Route: 041
     Dates: start: 201407
  2. CALCIUM LEVOFOLINATE [Concomitant]
     Active Substance: LEVOLEUCOVORIN CALCIUM
     Indication: ADENOCARCINOMA
  3. AVASTIN [Suspect]
     Active Substance: BEVACIZUMAB
     Indication: RECTAL CANCER
     Dosage: UNCERTAIN DOSAGE AND DOSE INTERVAL UNCERTAINTY
     Route: 041
     Dates: start: 201407, end: 2014
  4. OXALIPLATIN. [Concomitant]
     Active Substance: OXALIPLATIN
     Indication: ADENOCARCINOMA
     Route: 065
     Dates: start: 201309
  5. FLUOROURACIL. [Concomitant]
     Active Substance: FLUOROURACIL
     Indication: ADENOCARCINOMA
  6. OXALIPLATIN. [Concomitant]
     Active Substance: OXALIPLATIN
     Indication: RECTAL CANCER
     Dosage: UNCERTAIN DOSAGE AND DOSE INTERVAL UNCERTAINTY
     Route: 041
     Dates: start: 201307
  7. AVASTIN [Suspect]
     Active Substance: BEVACIZUMAB
     Indication: ADENOCARCINOMA
  8. FLUOROURACIL. [Concomitant]
     Active Substance: FLUOROURACIL
     Indication: RECTAL CANCER
     Dosage: UNCERTAIN DOSAGE AND DOSE INTERVAL UNCERTAINTY
     Route: 041
     Dates: start: 201407
  9. PANITUMUMAB [Concomitant]
     Active Substance: PANITUMUMAB
  10. IRINOTECAN [Concomitant]
     Active Substance: IRINOTECAN

REACTIONS (3)
  - Wound secretion [Not Recovered/Not Resolved]
  - Duodenal ulcer perforation [Not Recovered/Not Resolved]
  - Fistula [Unknown]
